FAERS Safety Report 23485160 (Version 1)
Quarter: 2024Q1

REPORT INFORMATION
  Report Type: Spontaneous
  Country: US (occurrence: US)
  Receive Date: 20240206
  Receipt Date: 20240206
  Transmission Date: 20240409
  Serious: No
  Sender: FDA-Public Use
  Company Number: US-SA-SAC20240127000430

PATIENT
  Sex: Female
  Weight: 83 kg

DRUGS (7)
  1. DUPIXENT [Suspect]
     Active Substance: DUPILUMAB
     Indication: Dermatitis atopic
     Dosage: 300 MG, QOW
     Route: 058
  2. EYE ITCH RELIEF [Concomitant]
     Active Substance: KETOTIFEN FUMARATE
  3. OPZELURA [Concomitant]
     Active Substance: RUXOLITINIB PHOSPHATE
  4. LOTEMAX [Concomitant]
     Active Substance: LOTEPREDNOL ETABONATE
  5. RESTASIS [Concomitant]
     Active Substance: CYCLOSPORINE
  6. PATADAY [Concomitant]
     Active Substance: OLOPATADINE HYDROCHLORIDE
  7. CERAVE HEALING [Concomitant]
     Active Substance: PETROLATUM

REACTIONS (1)
  - Rash [Unknown]
